FAERS Safety Report 7499014-7 (Version None)
Quarter: 2011Q2

REPORT INFORMATION
  Report Type: 
  Country: None (occurrence: None)
  Receive Date: 20110524
  Receipt Date: 20110519
  Transmission Date: 20111010
  Serious: Yes (Hospitalization)
  Sender: FDA-Public Use
  Company Number: IE-AMGEN-IRLSP2011026195

PATIENT
  Sex: Female

DRUGS (6)
  1. NEULASTA [Suspect]
     Indication: CHEMOTHERAPY
     Dosage: 6 MG, 2 TIMES/WK
     Route: 058
     Dates: start: 20110406
  2. ZOFRAN [Concomitant]
     Dosage: 8 MG, UNK
  3. MOTILIUM                           /00498201/ [Concomitant]
     Dosage: 10 MG, UNK
  4. DEXAMETHASONE [Concomitant]
     Dosage: 2 MG, UNK
  5. ATIVAN [Concomitant]
     Dosage: 0.5 MG, UNK
  6. MAXOLON [Concomitant]
     Dosage: 10 MG, UNK

REACTIONS (1)
  - INFLUENZA [None]
